FAERS Safety Report 16055871 (Version 3)
Quarter: 2019Q1

REPORT INFORMATION
  Report Type: Report from Study
  Country: None (occurrence: AT)
  Receive Date: 20190311
  Receipt Date: 20190314
  Transmission Date: 20190418
  Serious: Yes (Death, Hospitalization)
  Sender: FDA-Public Use
  Company Number: AT-ABBVIE-19S-009-2687554-00

PATIENT
  Age: 73 Year
  Sex: Male

DRUGS (3)
  1. DUODOPA [Suspect]
     Active Substance: CARBIDOPA\LEVODOPA
     Route: 050
     Dates: start: 2019, end: 2019
  2. DUODOPA [Suspect]
     Active Substance: CARBIDOPA\LEVODOPA
     Indication: PARKINSON^S DISEASE
     Dosage: 16H THERAPY MD: 13ML, CR DAYTIME: 3.7ML/H, ED: 2ML
     Route: 050
     Dates: start: 20190226, end: 201903
  3. DUODOPA [Suspect]
     Active Substance: CARBIDOPA\LEVODOPA
     Route: 050
     Dates: start: 2019, end: 2019

REACTIONS (5)
  - Stoma site haemorrhage [Recovering/Resolving]
  - Pneumonia aspiration [Fatal]
  - Myocardial infarction [Not Recovered/Not Resolved]
  - Sepsis [Fatal]
  - Ileus [Fatal]

NARRATIVE: CASE EVENT DATE: 20190226
